FAERS Safety Report 4635624-X (Version None)
Quarter: 2005Q2

REPORT INFORMATION
  Report Type: 
  Country: None (occurrence: None)
  Receive Date: 20050413
  Receipt Date: 20050406
  Transmission Date: 20051028
  Serious: Yes (Death)
  Sender: FDA-Public Use
  Company Number: 2005UW02884

PATIENT
  Age: 53 Year
  Sex: Female

DRUGS (3)
  1. SEROQUEL [Suspect]
     Indication: SCHIZOPHRENIA
     Dosage: 600 MG BID PO
     Route: 048
     Dates: start: 20030401
  2. SEROQUEL [Suspect]
     Indication: SCHIZOPHRENIA
     Dosage: 100 MG QID PO
     Route: 048
  3. TRILEPTAL [Concomitant]

REACTIONS (4)
  - DIFFICULTY IN WALKING [None]
  - DISEASE RECURRENCE [None]
  - ORTHOSTATIC HYPOTENSION [None]
  - PNEUMONIA [None]
